FAERS Safety Report 21032225 (Version 1)
Quarter: 2022Q3

REPORT INFORMATION
  Report Type: Spontaneous
  Country: NL (occurrence: NL)
  Receive Date: 20220701
  Receipt Date: 20220701
  Transmission Date: 20221027
  Serious: Yes (Hospitalization)
  Sender: FDA-Public Use
  Company Number: NL-CELGENE-NLD-20211206699

PATIENT
  Age: 62 Year
  Sex: Male

DRUGS (18)
  1. DEXAMETHASONE [Suspect]
     Active Substance: DEXAMETHASONE
     Indication: Plasma cell myeloma
     Dosage: UNIT DOSE:40MG, DURATION: 77 DAYS
     Route: 048
     Dates: start: 20210930, end: 20211216
  2. LENALIDOMIDE [Suspect]
     Active Substance: LENALIDOMIDE
     Indication: Plasma cell myeloma
     Dosage: UNIT DOSE: 25 MG, DURATION: 79 DAYS
     Route: 048
     Dates: start: 20210930, end: 20211218
  3. CARFILZOMIB [Suspect]
     Active Substance: CARFILZOMIB
     Indication: Plasma cell myeloma
     Dosage: UNIT DOSE: 108 MG, DURATION: 70 DAYS
     Route: 065
     Dates: start: 20210930, end: 20211209
  4. IBUPROFEN [Concomitant]
     Active Substance: IBUPROFEN
     Indication: Myocardial infarction
     Route: 065
     Dates: start: 20211219, end: 20211219
  5. IBUPROFEN [Concomitant]
     Active Substance: IBUPROFEN
     Route: 065
     Dates: end: 20211221
  6. FENTANYL [Concomitant]
     Active Substance: FENTANYL
     Indication: Myocardial infarction
     Dosage: DURATION: 2 DAYS
     Route: 065
     Dates: start: 20211219, end: 20211221
  7. POLYETHYLENE GLYCOLS [Concomitant]
     Active Substance: POLYETHYLENE GLYCOLS
     Indication: Constipation
     Route: 065
     Dates: start: 20211007
  8. CALCIUM CARBONATE [Concomitant]
     Active Substance: CALCIUM CARBONATE
     Indication: Prophylaxis
     Route: 065
     Dates: start: 20211028
  9. CALCIUM CARBONATE [Concomitant]
     Active Substance: CALCIUM CARBONATE
     Indication: Myocardial infarction
     Dosage: DURATION: 2 DAYS
     Route: 065
     Dates: start: 20211219, end: 20211221
  10. COTRIMOXAZOLE [Concomitant]
     Active Substance: SULFAMETHOXAZOLE\TRIMETHOPRIM
     Indication: Prophylaxis
     Route: 065
     Dates: start: 20210930
  11. PERINDOPRIL [Concomitant]
     Active Substance: PERINDOPRIL
     Indication: Prophylaxis
     Dosage: DURATION: 29 DAYS
     Route: 065
     Dates: start: 20211221, end: 20220119
  12. VALACYCLOVIR HYDROCHLORIDE [Concomitant]
     Active Substance: VALACYCLOVIR HYDROCHLORIDE
     Indication: Prophylaxis
     Route: 065
     Dates: start: 20210930
  13. PANTOPRAZOLE SODIUM [Concomitant]
     Active Substance: PANTOPRAZOLE SODIUM
     Indication: Prophylaxis
     Dosage: DURATION: 2 DAYS
     Route: 065
     Dates: start: 20211219, end: 20211221
  14. CARBASPIRIN CALCIUM [Concomitant]
     Active Substance: CARBASPIRIN CALCIUM
     Indication: Prophylaxis
     Route: 065
     Dates: start: 20210930
  15. FLUCONAZOLE [Concomitant]
     Active Substance: FLUCONAZOLE
     Indication: Prophylaxis
     Route: 065
     Dates: start: 20210930
  16. RASBURICASE [Concomitant]
     Active Substance: RASBURICASE
     Indication: Prophylaxis
     Route: 065
     Dates: start: 20210930, end: 20210930
  17. COLCHICINE [Concomitant]
     Active Substance: COLCHICINE
     Indication: Myocardial infarction
     Dosage: DURATION: 2 DAYS
     Route: 065
     Dates: start: 20211219, end: 20211221
  18. ZOLEDRONIC ACID [Concomitant]
     Active Substance: ZOLEDRONIC ACID
     Indication: Prophylaxis
     Route: 065
     Dates: start: 20211028

REACTIONS (1)
  - Myocardial infarction [Recovered/Resolved]

NARRATIVE: CASE EVENT DATE: 20211219
